FAERS Safety Report 11425358 (Version 1)
Quarter: 2015Q3

REPORT INFORMATION
  Report Type: Spontaneous
  Country: GB (occurrence: GB)
  Receive Date: 20150827
  Receipt Date: 20150827
  Transmission Date: 20151125
  Serious: Yes (Disabling)
  Sender: FDA-Public Use
  Company Number: GB-GLAXOSMITHKLINE-GB2015120953

PATIENT
  Age: 35 Year
  Sex: Female
  Weight: 143 kg

DRUGS (27)
  1. CETIRIZINE [Concomitant]
     Active Substance: CETIRIZINE HYDROCHLORIDE
     Indication: HYPERSENSITIVITY
     Dosage: EVERY DAY IF REQUIRED
     Dates: start: 20150810
  2. STERI-NEB SALINE [Concomitant]
     Dosage: USE AS DIRECTED
     Dates: start: 20150713
  3. VALSARTAN. [Concomitant]
     Active Substance: VALSARTAN
     Dates: start: 20080201
  4. CARBOCISTEINE [Concomitant]
     Active Substance: CARBOCYSTEINE
     Dates: start: 20141124
  5. SALBUTAMOL [Concomitant]
     Active Substance: ALBUTEROL
     Dosage: INHALE ONE OR TWO PUFFS WHEN REQUIRED UPTO FOUR
     Route: 055
     Dates: start: 20140219
  6. LAMOTRIGINE. [Suspect]
     Active Substance: LAMOTRIGINE
     Indication: PRODUCT USED FOR UNKNOWN INDICATION
     Dates: start: 20150813
  7. GABAPENTIN. [Concomitant]
     Active Substance: GABAPENTIN
     Indication: NEURALGIA
     Dates: start: 20131211
  8. PANTOPRAZOLE [Concomitant]
     Active Substance: PANTOPRAZOLE SODIUM
     Dates: start: 20130520
  9. PARACETAMOL [Concomitant]
     Active Substance: ACETAMINOPHEN
     Dosage: TAKE ONE OR TWO UP TO FOUR TIMES A DAY
     Dates: start: 20130604
  10. AVEENO [Concomitant]
     Active Substance: DIMETHICONE\HOMOSALATE\OCTINOXATE\OCTISALATE\TITANIUM DIOXIDE
     Dosage: USE AS DIRECTED
     Dates: start: 20140219
  11. FLUOXETINE [Concomitant]
     Active Substance: FLUOXETINE\FLUOXETINE HYDROCHLORIDE
     Indication: DEPRESSED MOOD
     Dosage: IN THE MORNING
     Dates: start: 20140219
  12. FOSTAIR [Concomitant]
     Active Substance: BECLOMETHASONE\FORMOTEROL
     Dosage: VIA AEROCHAMBER PLUS
     Dates: start: 20130822
  13. IBUPROFEN. [Concomitant]
     Active Substance: IBUPROFEN
     Indication: PAIN
     Dosage: 3 TIMES A DAY AFTER FOOD WHEN REQUIRED
     Dates: start: 20150810
  14. RANITIDINE [Concomitant]
     Active Substance: RANITIDINE\RANITIDINE HYDROCHLORIDE
     Indication: DYSPEPSIA
     Dates: start: 20150810
  15. SITAGLIPTIN [Concomitant]
     Active Substance: SITAGLIPTIN
     Dates: start: 20141006
  16. SODIUM CHLORIDE. [Concomitant]
     Active Substance: SODIUM CHLORIDE
     Dosage: USE AS DIRECTED
     Dates: start: 20150618, end: 20150625
  17. METFORMIN [Concomitant]
     Active Substance: METFORMIN HYDROCHLORIDE
     Indication: BLOOD GLUCOSE INCREASED
     Dates: start: 20141027
  18. MICONAZOLE. [Concomitant]
     Active Substance: MICONAZOLE NITRATE
     Indication: FUNGAL INFECTION
     Route: 061
     Dates: start: 20080724
  19. DESOGESTREL [Concomitant]
     Active Substance: DESOGESTREL
     Dates: start: 20150730
  20. HUMULIN NOS [Concomitant]
     Active Substance: INSULIN HUMAN
     Dosage: USE AS DIRECTED
     Dates: start: 20120103
  21. MONTELUKAST [Concomitant]
     Active Substance: MONTELUKAST SODIUM
     Indication: ASTHMA
     Dosage: AT NIGHT
     Dates: start: 20111025
  22. SIMVASTATIN. [Concomitant]
     Active Substance: SIMVASTATIN
     Indication: HYPERCHOLESTEROLAEMIA
     Dosage: EACH NIGHT
     Dates: start: 20111214
  23. SALAMOL [Concomitant]
     Active Substance: ALBUTEROL
     Dosage: INHALE THE CONTENTS OF ONE NEBULE FOUR TIMES DAILY
     Route: 055
     Dates: start: 20110418
  24. AMITRIPTYLINE HYDROCHLORIDE. [Concomitant]
     Active Substance: AMITRIPTYLINE HYDROCHLORIDE
     Dosage: AT NIGHT
     Dates: start: 20140507
  25. HYDROXOCOBALAMIN [Concomitant]
     Active Substance: HYDROXOCOBALAMIN
     Dosage: USE AS DIRECTED
     Dates: start: 20150612, end: 20150613
  26. IPRATROPIUM BROMIDE. [Concomitant]
     Active Substance: IPRATROPIUM BROMIDE
     Dates: start: 20110418
  27. NORETHISTERONE [Concomitant]
     Active Substance: NORETHINDRONE
     Dates: start: 20150713, end: 20150810

REACTIONS (1)
  - Speech disorder [Unknown]

NARRATIVE: CASE EVENT DATE: 20150813
